FAERS Safety Report 8858878 (Version 1)
Quarter: 2012Q4

REPORT INFORMATION
  Report Type: 
  Country: US (occurrence: US)
  Receive Date: 20121024
  Receipt Date: 20121024
  Transmission Date: 20130627
  Serious: No
  Sender: FDA-Public Use
  Company Number: US-009507513-1210USA004171

PATIENT
  Age: 17 None
  Sex: Female
  Weight: 61.22 kg

DRUGS (6)
  1. IMPLANON [Suspect]
     Indication: CONTRACEPTION
     Dosage: 1 rod, UNK
     Route: 059
     Dates: start: 2011
  2. HEMP [Concomitant]
  3. HYDROCODONE [Concomitant]
     Indication: PAIN
     Dosage: UNK, prn
  4. IBUPROFEN [Concomitant]
     Indication: PAIN
     Dosage: UNK, prn
  5. IRON (UNSPECIFIED) [Concomitant]
     Indication: ANAEMIA
  6. VITAMINS (UNSPECIFIED) [Concomitant]
     Indication: VITAMIN SUPPLEMENTATION

REACTIONS (13)
  - Metrorrhagia [Unknown]
  - Road traffic accident [Unknown]
  - Syncope [Unknown]
  - Anaemia [Unknown]
  - White blood cell count decreased [Unknown]
  - Electrocardiogram abnormal [Unknown]
  - Dyspnoea [Unknown]
  - Chest pain [Unknown]
  - Breast mass [Unknown]
  - Back pain [Unknown]
  - Gait disturbance [Unknown]
  - Syncope [Unknown]
  - Device breakage [Unknown]
